FAERS Safety Report 9469949 (Version 10)
Quarter: 2014Q1

REPORT INFORMATION
  Report Type: Report from Study
  Country: US (occurrence: US)
  Receive Date: 20130822
  Receipt Date: 20140312
  Transmission Date: 20141002
  Serious: Yes (Other)
  Sender: FDA-Public Use
  Company Number: PHEH2013US017713

PATIENT
  Age: 67 Year
  Sex: Female

DRUGS (2)
  1. GILENYA [Suspect]
     Indication: MULTIPLE SCLEROSIS
     Dosage: 0.5 MG, QD
     Route: 048
     Dates: start: 20111003
  2. AMPYRA [Suspect]
     Indication: MULTIPLE SCLEROSIS

REACTIONS (5)
  - Loss of consciousness [Unknown]
  - Visual impairment [Not Recovered/Not Resolved]
  - Convulsion [Recovered/Resolved]
  - Gait disturbance [Unknown]
  - Drug ineffective [Unknown]
